FAERS Safety Report 24789788 (Version 2)
Quarter: 2025Q3

REPORT INFORMATION
  Report Type: Report from Study
  Country: US (occurrence: US)
  Receive Date: 20241230
  Receipt Date: 20250802
  Transmission Date: 20251020
  Serious: Yes (Other)
  Sender: ALEXION PHARMACEUTICALS
  Company Number: US-AstraZeneca-CH-00771825A

PATIENT
  Sex: Male
  Weight: 106.14 kg

DRUGS (2)
  1. ACALABRUTINIB [Suspect]
     Active Substance: ACALABRUTINIB
     Indication: Chronic lymphocytic leukaemia
     Dosage: 100 MILLIGRAM, BID
     Dates: start: 202408
  2. IMBRUVICA [Concomitant]
     Active Substance: IBRUTINIB
     Route: 065

REACTIONS (3)
  - Blindness [Unknown]
  - Eye disorder [Unknown]
  - Vision blurred [Unknown]
